FAERS Safety Report 12355750 (Version 2)
Quarter: 2016Q3

REPORT INFORMATION
  Report Type: Report from Study
  Country: MX (occurrence: MX)
  Receive Date: 20160511
  Receipt Date: 20160712
  Transmission Date: 20161109
  Serious: Yes (Other)
  Sender: FDA-Public Use
  Company Number: MX-BAYER-2016-027072

PATIENT
  Age: 39 Year
  Sex: Female

DRUGS (3)
  1. NEXAVAR [Suspect]
     Active Substance: SORAFENIB
     Indication: HEPATOCELLULAR CARCINOMA
     Dosage: 400 MG, BID
     Route: 048
     Dates: start: 20160112
  2. AMLODIPINE [Concomitant]
     Active Substance: AMLODIPINE BESYLATE
     Dosage: UNK
  3. LOSARTAN. [Concomitant]
     Active Substance: LOSARTAN
     Dosage: UNK

REACTIONS (16)
  - Limb discomfort [Not Recovered/Not Resolved]
  - Mucosal ulceration [Recovering/Resolving]
  - Hyperaesthesia [Not Recovered/Not Resolved]
  - Gingival bleeding [Not Recovered/Not Resolved]
  - Blood pressure inadequately controlled [Not Recovered/Not Resolved]
  - Alopecia [Recovering/Resolving]
  - Fatigue [Not Recovered/Not Resolved]
  - Dry skin [Recovering/Resolving]
  - Hyperkeratosis [Recovering/Resolving]
  - Paraesthesia [Not Recovered/Not Resolved]
  - Diarrhoea [Recovering/Resolving]
  - Tongue discomfort [Not Recovered/Not Resolved]
  - Weight decreased [Recovering/Resolving]
  - Hypoaesthesia [Not Recovered/Not Resolved]
  - Erythema [Not Recovered/Not Resolved]
  - Erythema [None]

NARRATIVE: CASE EVENT DATE: 20160112
